FAERS Safety Report 4639901-8 (Version None)
Quarter: 2005Q2

REPORT INFORMATION
  Report Type: 
  Country: None (occurrence: None)
  Receive Date: 20050420
  Receipt Date: 20050413
  Transmission Date: 20051028
  Serious: Yes (Other)
  Sender: FDA-Public Use
  Company Number: PHNU2005DE01620

PATIENT
  Sex: Female

DRUGS (1)
  1. PROVAS 160 MAXX [Suspect]
     Indication: HYPERTENSION
     Route: 048
     Dates: end: 20050411

REACTIONS (3)
  - OEDEMA PERIPHERAL [None]
  - PARESIS [None]
  - POST-TRAUMATIC OSTEOPOROSIS [None]
